FAERS Safety Report 12354801 (Version 1)
Quarter: 2016Q2

REPORT INFORMATION
  Report Type: Spontaneous
  Country: US (occurrence: US)
  Receive Date: 20160511
  Receipt Date: 20160511
  Transmission Date: 20160815
  Serious: No
  Sender: FDA-Public Use
  Company Number: US-MYLANLABS-2015M1028230

PATIENT
  Age: 64 Year
  Sex: Female
  Weight: 70.75 kg

DRUGS (1)
  1. ESTRADIOL TABLETS, USP [Suspect]
     Active Substance: ESTRADIOL
     Indication: OESTROGEN THERAPY
     Dosage: 1 MG, QD
     Route: 048
     Dates: start: 201508, end: 20150817

REACTIONS (4)
  - Insomnia [Recovered/Resolved]
  - Pain [Recovered/Resolved]
  - Hot flush [Recovered/Resolved]
  - Malaise [Recovered/Resolved]

NARRATIVE: CASE EVENT DATE: 20150814
